FAERS Safety Report 4974409-1 (Version None)
Quarter: 2006Q2

REPORT INFORMATION
  Report Type: 
  Country: None (occurrence: None)
  Receive Date: 20060410
  Receipt Date: 20060331
  Transmission Date: 20061013
  Serious: Yes (Disabling)
  Sender: FDA-Public Use
  Company Number: HQWYE611031MAR06

PATIENT
  Age: 72 Year
  Sex: Female

DRUGS (8)
  1. CORDARONE [Suspect]
     Indication: ARRHYTHMIA
     Dosage: 1/2 TABLET DAILY; 100 MG 2X PER 1 DAY; 50 MG 2X PER 1 DAY
     Route: 048
     Dates: start: 20050101, end: 20050101
  2. CORDARONE [Suspect]
     Indication: ARRHYTHMIA
     Dosage: 1/2 TABLET DAILY; 100 MG 2X PER 1 DAY; 50 MG 2X PER 1 DAY
     Route: 048
     Dates: start: 20050101, end: 20050101
  3. CORDARONE [Suspect]
     Indication: ARRHYTHMIA
     Dosage: 1/2 TABLET DAILY; 100 MG 2X PER 1 DAY; 50 MG 2X PER 1 DAY
     Route: 048
     Dates: start: 20050907, end: 20050901
  4. METOPROLOL TARTRATE [Concomitant]
  5. COZAAR [Concomitant]
  6. LIPITOR [Concomitant]
  7. ZANTAC [Concomitant]
  8. WARFARIN SODIUM [Concomitant]

REACTIONS (4)
  - ABDOMINAL PAIN UPPER [None]
  - DECREASED ACTIVITY [None]
  - MYALGIA [None]
  - VISUAL DISTURBANCE [None]
